FAERS Safety Report 13818573 (Version 1)
Quarter: 2017Q3

REPORT INFORMATION
  Report Type: Report from Study
  Country: US (occurrence: US)
  Receive Date: 20170731
  Receipt Date: 20170731
  Transmission Date: 20171127
  Serious: Yes (Other)
  Sender: FDA-Public Use
  Company Number: US-GILEAD-2017-0284830

PATIENT
  Age: 65 Year
  Sex: Male

DRUGS (1)
  1. LEDIPASVIR/SOFOSBUVIR [Suspect]
     Active Substance: LEDIPASVIR\SOFOSBUVIR
     Indication: HEPATITIS C
     Dosage: UNK
     Route: 048

REACTIONS (12)
  - Drug ineffective [Unknown]
  - Hepatic cirrhosis [Unknown]
  - Back disorder [Not Recovered/Not Resolved]
  - Dementia [Unknown]
  - Nausea [Unknown]
  - Treatment failure [Unknown]
  - Anxiety [Unknown]
  - Memory impairment [Unknown]
  - Hypertension [Unknown]
  - Panic attack [Unknown]
  - Fatigue [Unknown]
  - Headache [Unknown]
